FAERS Safety Report 24016070 (Version 1)
Quarter: 2024Q2

REPORT INFORMATION
  Report Type: Spontaneous
  Country: NL (occurrence: NL)
  Receive Date: 20240626
  Receipt Date: 20240626
  Transmission Date: 20240716
  Serious: Yes (Life-Threatening, Hospitalization, Other)
  Sender: FDA-Public Use
  Company Number: NL-FERRINGPH-2005-00980FE

PATIENT

DRUGS (5)
  1. MINIRIN [Suspect]
     Active Substance: DESMOPRESSIN ACETATE
     Indication: Enuresis
     Dosage: 0.4 MG, DAILY BEFORE GOING TO SLEEP
     Route: 048
     Dates: start: 20050928
  2. MINIRIN [Suspect]
     Active Substance: DESMOPRESSIN ACETATE
     Dosage: 0.2 MG, DAILY BEFORE GOING TO SLEEP
     Route: 048
     Dates: end: 20051011
  3. DESMOPRESSIN [Suspect]
     Active Substance: DESMOPRESSIN
     Indication: Enuresis
     Dosage: 0.4 MG, DAILY
     Route: 048
     Dates: start: 20050920, end: 20050927
  4. PAROXETINE HYDROCHLORIDE [Concomitant]
     Active Substance: PAROXETINE HYDROCHLORIDE\PAROXETINE HYDROCHLORIDE ANHYDROUS
     Indication: Product used for unknown indication
     Dosage: 20 MG, 1 TIME DAILY
     Route: 048
     Dates: start: 200508
  5. ETHINYL ESTRADIOL\LEVONORGESTREL [Concomitant]
     Active Substance: ETHINYL ESTRADIOL\LEVONORGESTREL
     Indication: Oral contraception
     Route: 065

REACTIONS (5)
  - Pulmonary embolism [Recovered/Resolved]
  - Thirst [Recovered/Resolved]
  - Flushing [Recovered/Resolved]
  - Urinary retention [Recovered/Resolved]
  - Hyperhidrosis [Recovered/Resolved]

NARRATIVE: CASE EVENT DATE: 20050930
